FAERS Safety Report 7365224-2 (Version None)
Quarter: 2011Q1

REPORT INFORMATION
  Report Type: 
  Country: None (occurrence: None)
  Receive Date: 20110321
  Receipt Date: 20110211
  Transmission Date: 20110831
  Serious: Yes (Other)
  Sender: FDA-Public Use
  Company Number: PHFR2011GB01650

PATIENT
  Sex: Male

DRUGS (1)
  1. LESCOL [Suspect]
     Indication: DIABETES MELLITUS
     Dosage: UNK DF, UNK

REACTIONS (1)
  - BLINDNESS [None]
